FAERS Safety Report 16860892 (Version 1)
Quarter: 2019Q4

REPORT INFORMATION
  Report Type: Spontaneous
  Country: US (occurrence: US)
  Receive Date: 20190927
  Receipt Date: 20190927
  Transmission Date: 20200122
  Serious: Yes (Other)
  Sender: FDA-Public Use
  Company Number: None

PATIENT
  Age: 79 Year
  Sex: Female
  Weight: 67.5 kg

DRUGS (5)
  1. POTASSIUM CHLORIDE ER 10 MEQ [Concomitant]
     Dates: start: 20180630
  2. METOPROLOL ER SUCCINATE [Suspect]
     Active Substance: METOPROLOL SUCCINATE
     Indication: PRODUCT USED FOR UNKNOWN INDICATION
     Route: 048
     Dates: start: 20180524
  3. ELIQUIS [Concomitant]
     Active Substance: APIXABAN
     Dates: start: 20180504
  4. SOTALOL 80 MG [Concomitant]
     Active Substance: SOTALOL
     Dates: start: 20180628
  5. HYDROCHLOROTHIAZIDE 25 MG [Concomitant]
     Active Substance: HYDROCHLOROTHIAZIDE
     Dates: start: 20190628

REACTIONS (2)
  - Tachycardia [None]
  - Product substitution issue [None]

NARRATIVE: CASE EVENT DATE: 20190922
